FAERS Safety Report 7093982-3 (Version None)
Quarter: 2010Q4

REPORT INFORMATION
  Report Type: 
  Country: None (occurrence: None)
  Receive Date: 20101101
  Receipt Date: 20101018
  Transmission Date: 20110411
  Serious: Yes (Hospitalization, Other)
  Sender: FDA-Public Use
  Company Number: BR-001321

PATIENT
  Sex: Male

DRUGS (1)
  1. NAGLAZYME [Suspect]
     Indication: MUCOPOLYSACCHARIDOSIS VI
     Dosage: (DOSING REGIMEN AND FREQUENCY NOT REPORTED INTRAVENOUS DRIP)
     Route: 041

REACTIONS (3)
  - DISEASE RECURRENCE [None]
  - HERNIA [None]
  - PAIN [None]
